FAERS Safety Report 18550656 (Version 5)
Quarter: 2023Q1

REPORT INFORMATION
  Report Type: Spontaneous
  Country: US (occurrence: US)
  Receive Date: 20201126
  Receipt Date: 20230222
  Transmission Date: 20230417
  Serious: No
  Sender: FDA-Public Use
  Company Number: US-PFIZER INC-2020464279

PATIENT
  Age: 60 Year
  Sex: Female

DRUGS (3)
  1. INLYTA [Suspect]
     Active Substance: AXITINIB
     Dosage: 5 MG
     Dates: start: 20201119
  2. INLYTA [Suspect]
     Active Substance: AXITINIB
     Dosage: 5 MG
     Dates: start: 20220616
  3. INLYTA [Suspect]
     Active Substance: AXITINIB
     Dosage: 5 MG, CYCLIC (CYCLE OF 21 DAYS ON, 7 DAYS OFF)

REACTIONS (7)
  - Nausea [Unknown]
  - Blood pressure systolic increased [Unknown]
  - Asthenia [Unknown]
  - Decreased appetite [Unknown]
  - Blood pressure increased [Unknown]
  - Product dose omission issue [Unknown]
  - Product administration interrupted [Unknown]

NARRATIVE: CASE EVENT DATE: 20200101
